FAERS Safety Report 23832814 (Version 3)
Quarter: 2025Q4

REPORT INFORMATION
  Report Type: Spontaneous
  Country: US (occurrence: US)
  Receive Date: 20240508
  Receipt Date: 20251110
  Transmission Date: 20260117
  Serious: No
  Sender: SANOFI AVENTIS
  Company Number: US-SANOFI-02032094

PATIENT
  Age: 3 Year
  Sex: Male

DRUGS (8)
  1. DUPIXENT [Suspect]
     Active Substance: DUPILUMAB
     Indication: Eosinophilic oesophagitis
     Dosage: 200 MG, QW
     Route: 058
     Dates: start: 202303
  2. MELATONIN [Concomitant]
     Active Substance: MELATONIN
     Indication: Autism spectrum disorder
  3. MELATONIN [Concomitant]
     Active Substance: MELATONIN
     Indication: Insomnia
  4. VITAMINS NOS [Concomitant]
     Active Substance: VITAMINS
     Indication: Iron deficiency
  5. VITAMINS NOS [Concomitant]
     Active Substance: VITAMINS
     Indication: Vitamin B12 deficiency
  6. FLOVENT [Concomitant]
     Active Substance: FLUTICASONE PROPIONATE
     Indication: Asthma
     Route: 055
  7. MIRALAX [Concomitant]
     Active Substance: POLYETHYLENE GLYCOL 3350
  8. BISACODYL [Concomitant]
     Active Substance: BISACODYL

REACTIONS (3)
  - Accidental exposure to product [Unknown]
  - Exposure via skin contact [Unknown]
  - Off label use [Unknown]

NARRATIVE: CASE EVENT DATE: 20230301
